FAERS Safety Report 18990607 (Version 1)
Quarter: 2021Q1

REPORT INFORMATION
  Report Type: Spontaneous
  Country: DE (occurrence: DE)
  Receive Date: 20210310
  Receipt Date: 20210310
  Transmission Date: 20210420
  Serious: Yes (Life-Threatening, Hospitalization, Other)
  Sender: FDA-Public Use
  Company Number: DE-UCBSA-2021010400

PATIENT
  Age: 49 Year
  Sex: Female

DRUGS (22)
  1. CLEXANE [Concomitant]
     Active Substance: ENOXAPARIN SODIUM
     Indication: THROMBOSIS
     Dosage: 0.5?0?0.5?0
  2. ALENDRONIC ACID [Concomitant]
     Active Substance: ALENDRONIC ACID
     Indication: OSTEOPOROSIS
  3. PANTOPRAZOL [PANTOPRAZOLE] [Concomitant]
     Active Substance: PANTOPRAZOLE
     Indication: PROPHYLAXIS
     Dosage: 1?0?0?0
  4. PROPRA [PROPRANOLOL] [Concomitant]
     Indication: ARRHYTHMIA
     Dosage: 1?1?1?0
  5. DIPIPERON [Concomitant]
     Active Substance: PIPAMPERONE
     Indication: DELUSION
  6. VIMPAT [Suspect]
     Active Substance: LACOSAMIDE
     Indication: SEIZURE
     Dosage: 100 MILLIGRAM, EV 2 DAYS (1?0?1?0)
  7. NOVAMINSULFON [Concomitant]
     Active Substance: METAMIZOLE
     Indication: PAIN
     Dosage: 500 MILLIGRAM, AS NEEDED (PRN)
  8. LEVETIRACETAM DESITIN [Suspect]
     Active Substance: LEVETIRACETAM
     Indication: EPILEPSY
     Dosage: 250?1500 MG DAILY
  9. SPIRONOLACTON [Concomitant]
     Active Substance: SPIRONOLACTONE
     Indication: DEHYDRATION
     Dosage: 1?0?0?0
  10. TILIDIN [Concomitant]
     Active Substance: NALOXONE HYDROCHLORIDE\TILIDINE HYDROCHLORIDE
     Indication: POSTOPERATIVE ANALGESIA
  11. KONAKION [Concomitant]
     Active Substance: PHYTONADIONE
     Indication: PROPHYLAXIS
     Dosage: 1?0?0?0
  12. TILIDIN [Concomitant]
     Active Substance: NALOXONE HYDROCHLORIDE\TILIDINE HYDROCHLORIDE
     Indication: HIP FRACTURE
     Dosage: 50 MILLIGRAM, 2X/DAY (BID)
  13. KREON 25000 [Concomitant]
     Active Substance: PANCRELIPASE
     Indication: PROPHYLAXIS
     Dosage: 1?1?1?0
  14. PROPRA [PROPRANOLOL] [Concomitant]
     Indication: HYPERTENSION
  15. LEVETIRACETAM DESITIN [Suspect]
     Active Substance: LEVETIRACETAM
     Dosage: 1000 MILLIGRAM, EV 2 DAYS (1?0?1?0)
  16. MEDIKINET [METHYLPHENIDATE HYDROCHLORIDE] [Concomitant]
     Active Substance: METHYLPHENIDATE HYDROCHLORIDE
     Indication: PRODUCT USED FOR UNKNOWN INDICATION
     Dosage: 5 MILLIGRAM, DAILY
  17. NEURO?RATIOPHARM N [Concomitant]
     Indication: VITAMIN SUPPLEMENTATION
     Dosage: 1?0?0?0
  18. DIPIPERON [Concomitant]
     Active Substance: PIPAMPERONE
     Indication: HALLUCINATION
     Dosage: 0?0?1?0
  19. VIMPAT [Suspect]
     Active Substance: LACOSAMIDE
     Indication: ALTERED STATE OF CONSCIOUSNESS
  20. SERTRALINE [SERTRALINE HYDROCHLORIDE] [Concomitant]
     Active Substance: SERTRALINE HYDROCHLORIDE
     Indication: ANXIETY DISORDER DUE TO A GENERAL MEDICAL CONDITION
  21. TORASEMID [Concomitant]
     Active Substance: TORSEMIDE
     Indication: DEHYDRATION
     Dosage: 10 MILLIGRAM, 2X/DAY (BID)
  22. SERTRALINE [SERTRALINE HYDROCHLORIDE] [Concomitant]
     Active Substance: SERTRALINE HYDROCHLORIDE
     Indication: DEPRESSED MOOD
     Dosage: 0.5?0?0?0

REACTIONS (10)
  - General physical health deterioration [Unknown]
  - Nightmare [Unknown]
  - Product use issue [Unknown]
  - Femoral neck fracture [Unknown]
  - Confusional state [Unknown]
  - Aggression [Unknown]
  - Fall [Unknown]
  - Thrombosis [Unknown]
  - Sepsis [Unknown]
  - Arthritis [Unknown]

NARRATIVE: CASE EVENT DATE: 20200904
